FAERS Safety Report 8290338-2 (Version None)
Quarter: 2012Q2

REPORT INFORMATION
  Report Type: 
  Country: None (occurrence: None)
  Receive Date: 20120417
  Receipt Date: 20120409
  Transmission Date: 20120825
  Serious: Yes (Hospitalization)
  Sender: FDA-Public Use
  Company Number: ES-BAYER-2012-033846

PATIENT
  Age: 74 Year
  Sex: Male

DRUGS (4)
  1. SINTROM [Interacting]
     Indication: THROMBOSIS PROPHYLAXIS
     Route: 048
     Dates: start: 20120223, end: 20120325
  2. PLAVIX [Interacting]
     Indication: THROMBOSIS PROPHYLAXIS
     Route: 048
     Dates: start: 20110101, end: 20120225
  3. ENOXAPARIN SODIUM [Interacting]
     Indication: THROMBOSIS PROPHYLAXIS
     Route: 058
     Dates: start: 20120223, end: 20120225
  4. ASPIRIN [Suspect]
     Route: 048
     Dates: start: 20120223, end: 20120225

REACTIONS (2)
  - HAEMATURIA [None]
  - CHROMATURIA [None]
